FAERS Safety Report 10237958 (Version 1)
Quarter: 2014Q2

REPORT INFORMATION
  Report Type: Spontaneous
  Country: IT (occurrence: IT)
  Receive Date: 20140616
  Receipt Date: 20140616
  Transmission Date: 20141212
  Serious: Yes (Other)
  Sender: FDA-Public Use
  Company Number: IT-JNJFOC-20140603837

PATIENT
  Age: 28 Year
  Sex: Male

DRUGS (1)
  1. PREZISTA [Suspect]
     Indication: ACUTE HIV INFECTION
     Route: 048
     Dates: start: 20101130, end: 20140523

REACTIONS (1)
  - Gastritis [Unknown]
